FAERS Safety Report 7622712-9 (Version None)
Quarter: 2011Q3

REPORT INFORMATION
  Report Type: 
  Country: None (occurrence: None)
  Receive Date: 20110712
  Receipt Date: 20110621
  Transmission Date: 20111222
  Serious: Yes (Other)
  Sender: FDA-Public Use
  Company Number: 2011MA008140

PATIENT
  Age: 31 Year
  Sex: Male

DRUGS (4)
  1. QUETIAPINE FUMARATE [Suspect]
     Indication: PRODUCT USED FOR UNKNOWN INDICATION
     Dates: start: 20110330
  2. CLOZARIL [Suspect]
     Indication: SCHIZOPHRENIA
     Dosage: 400 MG, QD,. PO
     Route: 048
     Dates: start: 20001010, end: 20110308
  3. VENLAFAXINE HYDROCHLORIDE [Suspect]
     Indication: PRODUCT USED FOR UNKNOWN INDICATION
     Dosage: 225 MG, QD, PO
     Route: 048
  4. SULPIRIDE [Concomitant]

REACTIONS (4)
  - INSOMNIA [None]
  - WHITE BLOOD CELL COUNT DECREASED [None]
  - GOUT [None]
  - NEUTROPENIA [None]
